FAERS Safety Report 8401973-2 (Version None)
Quarter: 2012Q2

REPORT INFORMATION
  Report Type: 
  Country: None (occurrence: None)
  Receive Date: 20120601
  Receipt Date: 20120522
  Transmission Date: 20120825
  Serious: Yes (Other)
  Sender: FDA-Public Use
  Company Number: US-PFIZER INC-2012124733

PATIENT
  Sex: Female
  Weight: 63.9 kg

DRUGS (2)
  1. LEVOXYL [Concomitant]
     Indication: HYPERTHYROIDISM
     Dosage: UNK
  2. XALKORI [Suspect]
     Indication: LUNG CANCER METASTATIC
     Dosage: 250 MG, 2X/DAY
     Route: 048
     Dates: start: 20111123, end: 20120516

REACTIONS (2)
  - ABDOMINAL DISCOMFORT [None]
  - LIVER FUNCTION TEST ABNORMAL [None]
